FAERS Safety Report 7831638-7 (Version None)
Quarter: 2011Q4

REPORT INFORMATION
  Report Type: 
  Country: None (occurrence: None)
  Receive Date: 20111021
  Receipt Date: 20111020
  Transmission Date: 20120403
  Serious: Yes (Other)
  Sender: FDA-Public Use
  Company Number: AU-ROCHE-1006028

PATIENT
  Sex: Female

DRUGS (3)
  1. METHOTREXATE [Concomitant]
  2. ARAVA [Concomitant]
  3. ACTEMRA [Suspect]
     Indication: RHEUMATOID ARTHRITIS
     Dates: start: 20101104

REACTIONS (3)
  - PALPITATIONS [None]
  - FATIGUE [None]
  - CHEST DISCOMFORT [None]
